FAERS Safety Report 7220996-2 (Version None)
Quarter: 2011Q1

REPORT INFORMATION
  Report Type: 
  Country: None (occurrence: None)
  Receive Date: 20110112
  Receipt Date: 20110107
  Transmission Date: 20110831
  Serious: Yes (Death)
  Sender: FDA-Public Use
  Company Number: US-ASTELLAS-2011US000094

PATIENT

DRUGS (3)
  1. AMBISOME [Suspect]
     Indication: ASPERGILLOSIS
     Dosage: 50 MG, UID/QD
     Route: 042
     Dates: start: 20101201, end: 20101223
  2. PROGRAF [Suspect]
     Indication: TRANSPLANT
     Dosage: 1 MG, BID
     Route: 048
     Dates: start: 20061108
  3. MYCAMINE [Suspect]
     Indication: ASPERGILLOSIS
     Dosage: 50 MG, UID/QD
     Route: 042
     Dates: start: 20101201, end: 20101208

REACTIONS (1)
  - DEATH [None]
